FAERS Safety Report 19994841 (Version 1)
Quarter: 2021Q4

REPORT INFORMATION
  Report Type: Spontaneous
  Country: US (occurrence: US)
  Receive Date: 20211023
  Receipt Date: 20211023
  Transmission Date: 20220303
  Serious: No
  Sender: FDA-Public Use
  Company Number: None

PATIENT
  Age: 68 Year
  Sex: Male

DRUGS (11)
  1. REVLIMID [Suspect]
     Active Substance: LENALIDOMIDE
     Indication: Plasma cell myeloma
     Dosage: ?          OTHER FREQUENCY:QD X14/21D;
     Route: 048
     Dates: start: 20210806, end: 20211004
  2. dexanethasone [Concomitant]
  3. VELCADE [Concomitant]
     Active Substance: BORTEZOMIB
  4. ATENOLOL [Concomitant]
     Active Substance: ATENOLOL
  5. FINASTERIDE [Concomitant]
     Active Substance: FINASTERIDE
  6. DIPHENHYDRAMINE [Concomitant]
     Active Substance: DIPHENHYDRAMINE
  7. ACYCLOVIR [Concomitant]
     Active Substance: ACYCLOVIR
  8. OMEPRAZOLE [Concomitant]
     Active Substance: OMEPRAZOLE
  9. calcium carbonate-VitD3 [Concomitant]
  10. ASPIRIN [Concomitant]
     Active Substance: ASPIRIN
  11. TAMSULOSIN [Concomitant]
     Active Substance: TAMSULOSIN

REACTIONS (3)
  - Pruritus [None]
  - Dry skin [None]
  - Sensitive skin [None]

NARRATIVE: CASE EVENT DATE: 20211002
